FAERS Safety Report 24061738 (Version 1)
Quarter: 2024Q3

REPORT INFORMATION
  Report Type: Report from Study
  Country: US (occurrence: US)
  Receive Date: 20240708
  Receipt Date: 20240708
  Transmission Date: 20241017
  Serious: Yes (Other)
  Sender: PFIZER
  Company Number: US-PFIZER INC-PV202400087126

PATIENT
  Age: 55 Year
  Sex: Female

DRUGS (5)
  1. BRAFTOVI [Suspect]
     Active Substance: ENCORAFENIB
     Dosage: 450 MG, 1X/DAY
     Route: 048
     Dates: start: 20240515
  2. MEKTOVI [Suspect]
     Active Substance: BINIMETINIB
     Dosage: 45MG BID (TWICE A DAY)
     Route: 048
     Dates: start: 20240515
  3. MIRTAZAPINE [Concomitant]
     Active Substance: MIRTAZAPINE
     Dosage: UNK
  4. ONDANSETRON [Concomitant]
     Active Substance: ONDANSETRON
     Dosage: UNK
  5. IBUPROFEN [Concomitant]
     Active Substance: IBUPROFEN
     Dosage: UNK

REACTIONS (7)
  - Blindness [Unknown]
  - Vision blurred [Unknown]
  - Visual impairment [Unknown]
  - Rash macular [Unknown]
  - Halo vision [Unknown]
  - Dizziness [Unknown]
  - Gait disturbance [Unknown]
